FAERS Safety Report 4772413-X (Version None)
Quarter: 2005Q3

REPORT INFORMATION
  Report Type: 
  Country: None (occurrence: None)
  Receive Date: 20050919
  Receipt Date: 20050907
  Transmission Date: 20060218
  Serious: Yes (Hospitalization)
  Sender: FDA-Public Use
  Company Number: US-JNJFOC-20050902074

PATIENT
  Sex: Female
  Weight: 56.7 kg

DRUGS (17)
  1. REMICADE [Suspect]
     Route: 042
  2. REMICADE [Suspect]
     Dosage: 300 MG  3RD DOSE AFTER RE-INTRODUCTION
     Route: 042
  3. REMICADE [Suspect]
     Indication: CROHN'S DISEASE
     Route: 042
  4. ULTRACET [Concomitant]
  5. ULTRACET [Concomitant]
  6. PREDNISONE [Concomitant]
     Dosage: FOR FIVE DAYS
     Route: 048
  7. PREDNISONE [Concomitant]
     Route: 048
  8. LEVAQUIN [Concomitant]
  9. LEVAQUIN [Concomitant]
  10. LEVAQUIN [Concomitant]
  11. PENTASA [Concomitant]
  12. ZOFRAN [Concomitant]
     Dosage: WHENEVER NECESSARY
  13. ELAVIL [Concomitant]
     Route: 048
  14. PHENERGAN [Concomitant]
  15. SOLU-MEDROL [Concomitant]
     Indication: PREMEDICATION
     Dosage: INTRAVENOUS PUSH BEFORE INFLIXIMAB
     Route: 042
  16. BENADRYL [Concomitant]
     Indication: PREMEDICATION
     Route: 048
  17. DILAUDID [Concomitant]

REACTIONS (8)
  - HOSPITALISATION [None]
  - INFUSION RELATED REACTION [None]
  - NAUSEA [None]
  - ORAL PRURITUS [None]
  - PRURITUS [None]
  - PRURITUS GENERALISED [None]
  - THROAT IRRITATION [None]
  - URTICARIA [None]
